FAERS Safety Report 7012327-8 (Version None)
Quarter: 2010Q3

REPORT INFORMATION
  Report Type: 
  Country: None (occurrence: None)
  Receive Date: 20100924
  Receipt Date: 20100914
  Transmission Date: 20110219
  Serious: Yes (Other)
  Sender: FDA-Public Use
  Company Number: HU-JNJFOC-20100905320

PATIENT
  Age: 52 Year
  Sex: Female

DRUGS (4)
  1. REMICADE [Suspect]
     Indication: COLITIS
     Dosage: 3 AMPULES; 4TH INFUSION
     Route: 042
  2. REMICADE [Suspect]
     Dosage: 3 AMPULES; 5TH INFUSION
     Route: 042
  3. REMICADE [Suspect]
     Dosage: 3 AMPULES; 2 INFUSIONS ON UNSPECIFIED DATES
     Route: 042
  4. REMICADE [Suspect]
     Dosage: 3 AMPULES
     Route: 042

REACTIONS (3)
  - DYSPNOEA [None]
  - INFUSION RELATED REACTION [None]
  - TACHYCARDIA [None]
